FAERS Safety Report 9826702 (Version 2)
Quarter: 2014Q1

REPORT INFORMATION
  Report Type: Spontaneous
  Country: US (occurrence: None)
  Receive Date: 20140115
  Receipt Date: 20140122
  Transmission Date: 20141002
  Serious: Yes (Death)
  Sender: FDA-Public Use
  Company Number: UTC-042926

PATIENT
  Age: 57 Year
  Sex: Male
  Weight: 87.3 kg

DRUGS (3)
  1. TYVASO [Suspect]
     Indication: COR PULMONALE CHRONIC
     Dosage: 180 MCG (30 MCG, 6 IN 1 D), INHALATION
     Route: 055
     Dates: start: 20110525
  2. REVATIO (SILDENAFIL CITRATE) (UNKNOWN) [Concomitant]
  3. TRACLEER (BOSENTAN) (UNKNOWN) [Concomitant]

REACTIONS (2)
  - Death [None]
  - Lung adenocarcinoma [None]
